FAERS Safety Report 7273306-9 (Version None)
Quarter: 2011Q1

REPORT INFORMATION
  Report Type: 
  Country: None (occurrence: None)
  Receive Date: 20110203
  Receipt Date: 20100727
  Transmission Date: 20110831
  Serious: No
  Sender: FDA-Public Use
  Company Number: US-ABBOTT-10P-163-0661514-00

PATIENT
  Sex: Female
  Weight: 49.032 kg

DRUGS (9)
  1. THYROID TAB [Concomitant]
     Indication: THYROID CANCER
     Dates: start: 20100709
  2. SYNTHROID [Suspect]
     Indication: THYROID CANCER
     Dates: start: 20090816
  3. SYNTHROID [Suspect]
     Dosage: SKIPPED 1 DAY OF WEEK
     Dates: end: 20100401
  4. SYNTHROID [Suspect]
  5. LEVOXYL [Suspect]
     Indication: THYROID CANCER
     Dates: start: 20100401, end: 20100709
  6. SYNTHROID [Suspect]
     Dosage: 6 IN 1 WEEKS, SKIPPED ONE DAY OF WEEK
     Dates: end: 20100401
  7. SYNTHROID [Suspect]
  8. SYNTHROID [Suspect]
     Indication: THYROID CANCER
  9. SYNTHROID [Suspect]
     Indication: THYROID CANCER

REACTIONS (6)
  - WEIGHT DECREASED [None]
  - POLYMENORRHOEA [None]
  - ABDOMINAL PAIN UPPER [None]
  - ANAEMIA [None]
  - THYROID FUNCTION TEST ABNORMAL [None]
  - DIARRHOEA [None]
